FAERS Safety Report 19331112 (Version 2)
Quarter: 2022Q2

REPORT INFORMATION
  Report Type: Spontaneous
  Country: US (occurrence: US)
  Receive Date: 20210528
  Receipt Date: 20220527
  Transmission Date: 20220721
  Serious: No
  Sender: FDA-Public Use
  Company Number: US-SIGMAPHARM LABORATORIES, LLC-2021SIG00023

PATIENT
  Age: 76 Year
  Sex: Male
  Weight: 87.075 kg

DRUGS (16)
  1. ACITRETIN [Suspect]
     Active Substance: ACITRETIN
     Indication: Psoriasis
     Dosage: 25 MG, 1X/DAY
     Route: 048
     Dates: start: 202009, end: 202011
  2. ACITRETIN [Suspect]
     Active Substance: ACITRETIN
     Dosage: 25 MG, 2X/DAY
     Route: 048
     Dates: start: 202011
  3. ACITRETIN [Suspect]
     Active Substance: ACITRETIN
     Dosage: 25 MG, 1X/DAY
     Route: 048
     Dates: end: 2021
  4. ACITRETIN [Suspect]
     Active Substance: ACITRETIN
     Dosage: 25 MG, EVERY 48 HOURS
     Route: 048
     Dates: start: 2021, end: 202105
  5. ISONIAZID [Suspect]
     Active Substance: ISONIAZID
     Indication: Tuberculosis
     Dosage: UNK, 1X/DAY
     Dates: start: 20201129
  6. VITAMIN B6 [Concomitant]
     Active Substance: PYRIDOXINE HYDROCHLORIDE
     Dosage: 0.5 TABLETS, 1X/DAY
  7. NEXIUM [Concomitant]
     Active Substance: ESOMEPRAZOLE MAGNESIUM
  8. FISH OIL [Concomitant]
     Active Substance: FISH OIL
  9. FLOMAX [Concomitant]
     Active Substance: TAMSULOSIN HYDROCHLORIDE
  10. FUROSEMIDE [Concomitant]
     Active Substance: FUROSEMIDE
  11. ASPIRIN [Concomitant]
     Active Substance: ASPIRIN
     Dosage: UNK, EVERY 72 HOURS (EVERY 3 DAYS)
  12. UNSPECIFIED FIBER MEDICINE [Concomitant]
  13. MIRALAX [Concomitant]
     Active Substance: POLYETHYLENE GLYCOL 3350
  14. ALPRAZOLAM [Concomitant]
     Active Substance: ALPRAZOLAM
  15. OCUVITE [Concomitant]
     Active Substance: VITAMINS
  16. UNSPECIFIED FLUID PILL (STARTS WITH A ^T^) [Concomitant]
     Dosage: 10 MG

REACTIONS (17)
  - Hypoaesthesia [Not Recovered/Not Resolved]
  - Spider vein [Not Recovered/Not Resolved]
  - Asthenia [Not Recovered/Not Resolved]
  - Joint stiffness [Recovering/Resolving]
  - Limb discomfort [Unknown]
  - Therapeutic product effect incomplete [Not Recovered/Not Resolved]
  - Fatigue [Not Recovered/Not Resolved]
  - Blister [Not Recovered/Not Resolved]
  - Skin lesion [Not Recovered/Not Resolved]
  - Scab [Not Recovered/Not Resolved]
  - Blister rupture [Not Recovered/Not Resolved]
  - Skin discharge [Not Recovered/Not Resolved]
  - Skin exfoliation [Recovering/Resolving]
  - Nail disorder [Not Recovered/Not Resolved]
  - Onychoclasis [Not Recovered/Not Resolved]
  - Peripheral swelling [Recovering/Resolving]
  - Muscular weakness [Not Recovered/Not Resolved]

NARRATIVE: CASE EVENT DATE: 20200901
